FAERS Safety Report 8401752-6 (Version None)
Quarter: 2012Q2

REPORT INFORMATION
  Report Type: 
  Country: None (occurrence: None)
  Receive Date: 20120601
  Receipt Date: 20120522
  Transmission Date: 20120825
  Serious: Yes (Hospitalization)
  Sender: FDA-Public Use
  Company Number: FR-EISAI INC-E3810-05558-SPO-FR

PATIENT
  Sex: Female
  Weight: 67 kg

DRUGS (13)
  1. BACTRIM [Concomitant]
     Indication: PROPHYLAXIS
     Dosage: 800/160 MG
     Route: 048
     Dates: start: 20111103
  2. LEXOMIL [Concomitant]
     Indication: PROPHYLAXIS
     Route: 048
  3. VELCADE [Suspect]
     Route: 042
     Dates: start: 20111115, end: 20120106
  4. CELECTOL [Concomitant]
     Route: 048
  5. ALLOPURINOL [Concomitant]
     Indication: PROPHYLAXIS
     Route: 048
  6. MORPHINE SULFATE [Concomitant]
     Indication: PROPHYLAXIS
     Route: 048
  7. DEXAMETHASONE [Suspect]
     Dates: start: 20111115, end: 20120107
  8. INNOHEP [Concomitant]
     Indication: PROPHYLAXIS
     Route: 048
     Dates: start: 20111103
  9. LENALIDOMIDE [Suspect]
     Dates: start: 20111115, end: 20120109
  10. EZETIMIBE [Concomitant]
     Indication: PROPHYLAXIS
     Route: 048
  11. RABEPRAZOLE SODIUM [Suspect]
     Indication: PROPHYLAXIS
     Route: 048
  12. CLONAZEPAM [Concomitant]
     Indication: PROPHYLAXIS
     Route: 048
  13. VALACYCLOVIR HYDROCHLORIDE [Concomitant]
     Indication: PROPHYLAXIS
     Route: 048
     Dates: start: 20111103

REACTIONS (8)
  - TOXIC SKIN ERUPTION [None]
  - APLASTIC ANAEMIA [None]
  - STAPHYLOCOCCAL INFECTION [None]
  - MITRAL VALVE INCOMPETENCE [None]
  - CYTOMEGALOVIRUS INFECTION [None]
  - CATHETER SITE INFLAMMATION [None]
  - CYSTITIS [None]
  - PARAESTHESIA [None]
